FAERS Safety Report 8585053-1 (Version None)
Quarter: 2012Q3

REPORT INFORMATION
  Report Type: 
  Country: None (occurrence: None)
  Receive Date: 20120810
  Receipt Date: 20120802
  Transmission Date: 20120928
  Serious: Yes (Hospitalization)
  Sender: FDA-Public Use
  Company Number: US-US-EMD SERONO, INC.-7150806

PATIENT
  Sex: Female

DRUGS (5)
  1. REBIF [Suspect]
     Route: 058
  2. PERCOCET [Concomitant]
     Indication: PREMEDICATION
  3. REBIF [Suspect]
     Indication: PRODUCT USED FOR UNKNOWN INDICATION
     Route: 058
     Dates: start: 20120713
  4. PERCOCET [Concomitant]
     Indication: BACK PAIN
  5. PERCOCET [Concomitant]
     Indication: PAIN IN EXTREMITY

REACTIONS (5)
  - BACK PAIN [None]
  - LETHARGY [None]
  - PAIN IN EXTREMITY [None]
  - PAIN [None]
  - NECK PAIN [None]
